FAERS Safety Report 23231351 (Version 1)
Quarter: 2023Q4

REPORT INFORMATION
  Report Type: Spontaneous
  Country: US (occurrence: None)
  Receive Date: 20231124
  Receipt Date: 20231124
  Transmission Date: 20240109
  Serious: Yes (Disabling)
  Sender: FDA-Public Use
  Company Number: None

PATIENT
  Age: 21 Year
  Sex: Female
  Weight: 54 kg

DRUGS (4)
  1. CLOMIPRAMINE [Suspect]
     Active Substance: CLOMIPRAMINE
     Indication: Obsessive-compulsive disorder
     Dates: start: 20230310, end: 20230314
  2. WELLBUTRIN [Concomitant]
     Active Substance: BUPROPION HYDROCHLORIDE
  3. LYRICA [Concomitant]
     Active Substance: PREGABALIN
  4. PEPCID [Concomitant]
     Active Substance: FAMOTIDINE

REACTIONS (4)
  - Sexual dysfunction [None]
  - Depression [None]
  - Suicidal behaviour [None]
  - Genital hypoaesthesia [None]

NARRATIVE: CASE EVENT DATE: 20230310
